FAERS Safety Report 6406066-1 (Version None)
Quarter: 2009Q4

REPORT INFORMATION
  Report Type: 
  Country: None (occurrence: None)
  Receive Date: 20091019
  Receipt Date: 20091006
  Transmission Date: 20100525
  Serious: Yes (Hospitalization, Other)
  Sender: FDA-Public Use
  Company Number: IE-ELI_LILLY_AND_COMPANY-IE200901005131

PATIENT
  Sex: Male

DRUGS (4)
  1. ZYPREXA [Suspect]
     Indication: SCHIZOPHRENIA
     Dosage: UNK, UNK
     Dates: start: 19990101
  2. ZYPREXA [Suspect]
     Dosage: 20 MG, UNK
     Route: 048
     Dates: start: 20081225, end: 20090101
  3. DOMPERIDONE [Concomitant]
     Dosage: UNK, DAILY (1/D)
  4. HALOPERIDOL [Concomitant]
     Dosage: 10 MG, QOD
     Route: 048
     Dates: start: 20081225, end: 20081231

REACTIONS (5)
  - AGITATION [None]
  - BLOOD CREATINE PHOSPHOKINASE INCREASED [None]
  - CATATONIA [None]
  - PSYCHOTIC DISORDER [None]
  - PYREXIA [None]
